FAERS Safety Report 8036042-7 (Version None)
Quarter: 2012Q1

REPORT INFORMATION
  Report Type: 
  Country: None (occurrence: None)
  Receive Date: 20120111
  Receipt Date: 20111229
  Transmission Date: 20120608
  Serious: Yes (Hospitalization, Other)
  Sender: FDA-Public Use
  Company Number: US-ARROW GEN-2011-23232

PATIENT
  Age: 67 Year
  Sex: Female

DRUGS (1)
  1. ALENDRONATE SODIUM [Suspect]
     Indication: OSTEOPENIA
     Dosage: UNK

REACTIONS (2)
  - IMPAIRED HEALING [None]
  - FEMUR FRACTURE [None]
